FAERS Safety Report 7907510-0 (Version None)
Quarter: 2011Q4

REPORT INFORMATION
  Report Type: 
  Country: None (occurrence: None)
  Receive Date: 20111110
  Receipt Date: 20111101
  Transmission Date: 20120403
  Serious: Yes (Other)
  Sender: FDA-Public Use
  Company Number: US-BAYER-2011-044845

PATIENT
  Age: 36 Year
  Sex: Female
  Weight: 80 kg

DRUGS (22)
  1. PRILOSEC [Concomitant]
     Indication: GASTROOESOPHAGEAL REFLUX DISEASE
     Dosage: UNK
     Dates: start: 20060101
  2. NEXIUM [Concomitant]
  3. LORAZEPAM [Concomitant]
  4. ZANTAC [Concomitant]
  5. PAXIL [Concomitant]
     Indication: THYROID DISORDER
     Dosage: UNK
     Dates: start: 20060101
  6. ATIVAN [Concomitant]
     Indication: ANXIETY
  7. TRAZODONE HCL [Concomitant]
     Indication: DEPRESSION
     Dosage: UNK
     Dates: start: 20060101
  8. ACIPHEX [Concomitant]
  9. YAZ [Suspect]
     Indication: HIRSUTISM
     Dosage: UNK
     Dates: start: 20060101, end: 20091101
  10. PROTONIX [Concomitant]
  11. LEVOXYL [Concomitant]
  12. PROMETHAZINE [Concomitant]
  13. TRAZODONE HCL [Concomitant]
     Indication: ANXIETY
  14. ATENOLOL [Concomitant]
     Indication: HYPERTENSION
     Dosage: 25 MG, UNK
     Dates: start: 20090611
  15. LEVOTHYROXINE SODIUM [Concomitant]
     Indication: HYPOTHYROIDISM
     Dosage: UNK
     Dates: start: 20060101
  16. DARVOCET [Concomitant]
     Indication: HEADACHE
     Dosage: UNK UNK, PRN
     Dates: start: 20090611
  17. SPIRONOLACTONE [Concomitant]
     Indication: HIRSUTISM
     Dosage: 50 MG, UNK
     Dates: start: 20060101
  18. YAZ [Suspect]
     Indication: PREMENSTRUAL SYNDROME
  19. ATIVAN [Concomitant]
     Indication: DEPRESSION
     Dosage: 2.5 MG, UNK
     Dates: start: 20060101
  20. YAZ [Suspect]
     Indication: MENSTRUATION IRREGULAR
  21. SUCRALFATE [Concomitant]
     Indication: SLEEP DISORDER
     Dosage: UNK
     Dates: start: 20060101
  22. METFORMIN HCL [Concomitant]
     Indication: DIABETES MELLITUS
     Dosage: 500 MG, UNK
     Dates: start: 20060101

REACTIONS (14)
  - GASTRITIS [None]
  - ABDOMINAL PAIN UPPER [None]
  - VOMITING [None]
  - CHOLELITHIASIS [None]
  - ANXIETY [None]
  - INJURY [None]
  - DIARRHOEA [None]
  - GALLBLADDER INJURY [None]
  - CHOLECYSTITIS CHRONIC [None]
  - GASTRIC DISORDER [None]
  - FEAR [None]
  - DEPRESSION [None]
  - HIATUS HERNIA [None]
  - NAUSEA [None]
